FAERS Safety Report 4521406-6 (Version None)
Quarter: 2005Q1

REPORT INFORMATION
  Report Type: 
  Country: None (occurrence: None)
  Receive Date: 20041028
  Receipt Date: 20040716
  Transmission Date: 20050727
  Serious: Yes (Other)
  Sender: FDA-Public Use
  Company Number: HQWYE323322JUL04

PATIENT
  Age: 50 Year
  Sex: Female

DRUGS (1)
  1. PREMARIN [Suspect]
     Indication: OESTROGEN REPLACEMENT THERAPY
     Dates: start: 19860101

REACTIONS (3)
  - OVARIAN CANCER [None]
  - PULMONARY EMBOLISM [None]
  - THROMBOSIS [None]
